FAERS Safety Report 11814747 (Version 3)
Quarter: 2016Q1

REPORT INFORMATION
  Report Type: Spontaneous
  Country: JP (occurrence: JP)
  Receive Date: 20151209
  Receipt Date: 20160119
  Transmission Date: 20160525
  Serious: Yes (Life-Threatening, Hospitalization)
  Sender: FDA-Public Use
  Company Number: JP-JNJFOC-20151206977

PATIENT
  Age: 63 Year
  Sex: Male
  Weight: 53 kg

DRUGS (3)
  1. TRAMAL OD [Suspect]
     Active Substance: TRAMADOL
     Indication: FRACTURE PAIN
     Route: 048
     Dates: start: 20151201, end: 20151202
  2. BUPRENORPHINE. [Concomitant]
     Active Substance: BUPRENORPHINE
     Indication: FRACTURE PAIN
     Route: 065
     Dates: start: 1984
  3. TRAMAL OD [Suspect]
     Active Substance: TRAMADOL
     Indication: FRACTURE PAIN
     Route: 048
     Dates: start: 20151127, end: 20151130

REACTIONS (2)
  - Coma [Recovering/Resolving]
  - Coma [Recovered/Resolved]

NARRATIVE: CASE EVENT DATE: 20151130
